FAERS Safety Report 10082925 (Version 1)
Quarter: 2014Q2

REPORT INFORMATION
  Report Type: Spontaneous
  Country: US (occurrence: IT)
  Receive Date: 20140417
  Receipt Date: 20140417
  Transmission Date: 20141212
  Serious: Yes (Other)
  Sender: FDA-Public Use
  Company Number: 2014SP002127

PATIENT
  Age: 45 Year
  Sex: Male
  Weight: 80 kg

DRUGS (2)
  1. CISPLATIN [Suspect]
     Indication: MALIGNANT NEOPLASM OF RENAL PELVIS
     Route: 042
     Dates: start: 20140129, end: 20140402
  2. GEMCITABINE [Suspect]
     Indication: MALIGNANT NEOPLASM OF RENAL PELVIS
     Route: 042
     Dates: start: 20140129, end: 20140402

REACTIONS (4)
  - Hyposideraemia [Recovered/Resolved]
  - Neutropenia [Recovered/Resolved]
  - Leukopenia [Recovered/Resolved]
  - Asthenia [Recovered/Resolved]
